FAERS Safety Report 8607046-8 (Version None)
Quarter: 2012Q3

REPORT INFORMATION
  Report Type: 
  Country: None (occurrence: None)
  Receive Date: 20120821
  Receipt Date: 20120816
  Transmission Date: 20120928
  Serious: Yes (Hospitalization)
  Sender: FDA-Public Use
  Company Number: US-AMGEN-USASP2012051099

PATIENT
  Age: 55 Year
  Sex: Female

DRUGS (1)
  1. ENBREL [Suspect]
     Indication: RHEUMATOID ARTHRITIS
     Dosage: 50 MG, QWK
     Dates: start: 19980101

REACTIONS (6)
  - CHILLS [None]
  - FATIGUE [None]
  - INJECTION SITE PAIN [None]
  - KNEE ARTHROPLASTY [None]
  - JOINT CONTRACTURE [None]
  - THERAPEUTIC RESPONSE DECREASED [None]
